FAERS Safety Report 7501590-2 (Version None)
Quarter: 2011Q2

REPORT INFORMATION
  Report Type: 
  Country: None (occurrence: None)
  Receive Date: 20110524
  Receipt Date: 20110512
  Transmission Date: 20111010
  Serious: Yes (Hospitalization)
  Sender: FDA-Public Use
  Company Number: TR-WATSON-2011-07043

PATIENT
  Age: 17 Year
  Sex: Male

DRUGS (3)
  1. CONCERTA [Suspect]
     Indication: DISTURBANCE IN ATTENTION
     Route: 048
  2. ARIPIPRAZOLE [Suspect]
     Indication: ATTENTION DEFICIT/HYPERACTIVITY DISORDER
  3. RISPERIDONE [Suspect]
     Indication: SCHIZOPHRENIA
     Dosage: 2.5 MG/DAY  IN TWO DIVIDED DOSES
     Route: 048

REACTIONS (2)
  - DRUG INTERACTION [None]
  - PSYCHOTIC DISORDER [None]
